FAERS Safety Report 9266494 (Version 2)
Quarter: 2013Q3

REPORT INFORMATION
  Report Type: Spontaneous
  Country: GB (occurrence: GB)
  Receive Date: 20130502
  Receipt Date: 20130723
  Transmission Date: 20140515
  Serious: Yes (Life-Threatening, Hospitalization)
  Sender: FDA-Public Use
  Company Number: GB-JNJFOC-20130415568

PATIENT
  Age: 90 Year
  Sex: Female

DRUGS (13)
  1. XARELTO [Suspect]
     Indication: HIP ARTHROPLASTY
     Route: 048
     Dates: start: 201303, end: 201304
  2. XARELTO [Suspect]
     Indication: THROMBOSIS PROPHYLAXIS
     Route: 048
     Dates: start: 201303, end: 201304
  3. CILOSTAZOL [Suspect]
     Indication: PRODUCT USED FOR UNKNOWN INDICATION
     Route: 048
  4. ACETYLSALICYLIC ACID [Suspect]
     Indication: PRODUCT USED FOR UNKNOWN INDICATION
     Route: 048
  5. LACTULOSE [Concomitant]
     Indication: CONSTIPATION
     Route: 048
  6. PARACETAMOL [Concomitant]
     Route: 065
  7. RAMIPRIL [Concomitant]
     Route: 048
  8. NICORANDIL [Concomitant]
     Route: 048
  9. LACIDIPINE [Concomitant]
     Route: 048
  10. SENNA [Concomitant]
     Indication: CONSTIPATION
     Route: 048
  11. CODEINE [Concomitant]
     Route: 048
  12. ATORVASTATIN [Concomitant]
     Route: 048
  13. FUROSEMIDE [Concomitant]
     Route: 048

REACTIONS (4)
  - Haemoglobin decreased [Recovered/Resolved with Sequelae]
  - Faeces discoloured [Recovered/Resolved with Sequelae]
  - Balance disorder [Unknown]
  - Gastrointestinal haemorrhage [Unknown]
